FAERS Safety Report 7304883-7 (Version None)
Quarter: 2011Q1

REPORT INFORMATION
  Report Type: 
  Country: None (occurrence: None)
  Receive Date: 20110222
  Receipt Date: 20110214
  Transmission Date: 20110831
  Serious: Yes (Hospitalization)
  Sender: FDA-Public Use
  Company Number: US-AMGEN-USASP2010004643

PATIENT
  Age: 54 Year
  Sex: Female
  Weight: 48.526 kg

DRUGS (10)
  1. PROCRIT [Suspect]
     Indication: LIVER TRANSPLANT
     Dosage: 40000 IU, QWK
     Route: 058
     Dates: start: 20100310, end: 20100414
  2. SPIROLACTON [Concomitant]
     Indication: SWELLING
     Dosage: 50 MG, BID
     Route: 048
  3. LASIX [Concomitant]
     Indication: SWELLING
     Dosage: 40 MG, QD
     Route: 048
  4. OXYCODONE [Concomitant]
     Indication: PAIN
     Dosage: 5 MG, QD
  5. INTERFERON [Concomitant]
     Indication: LIVER TRANSPLANT
     Dosage: 16 A?G, QD
     Route: 058
     Dates: start: 20090801
  6. PROGRAF [Concomitant]
     Dosage: 1 MG, UNK
  7. RIBAVIRIN [Concomitant]
     Indication: LIVER TRANSPLANT
     Dosage: UNK UNK, QD
     Dates: start: 20090801
  8. PROCRIT [Suspect]
     Dosage: 40000 IU, QWK
     Route: 058
     Dates: start: 20100527, end: 20100101
  9. ZOLOFT [Concomitant]
     Indication: DEPRESSION
     Dosage: 50 MG, QD
     Route: 048
  10. MYFORTIC                           /01275101/ [Concomitant]
     Dosage: UNK
     Dates: end: 20101001

REACTIONS (1)
  - INJECTION SITE ULCER [None]
